FAERS Safety Report 19191715 (Version 3)
Quarter: 2021Q2

REPORT INFORMATION
  Report Type: Report from Study
  Country: CN (occurrence: CN)
  Receive Date: 20210428
  Receipt Date: 20210524
  Transmission Date: 20210717
  Serious: Yes (Hospitalization)
  Sender: FDA-Public Use
  Company Number: CN-PFIZER INC-2021421107

PATIENT
  Age: 67 Year
  Sex: Female
  Weight: 52.5 kg

DRUGS (9)
  1. VALSARTAN. [Concomitant]
     Active Substance: VALSARTAN
     Indication: HYPERTENSION
     Dosage: 80 MG, 1X/DAY
     Route: 048
     Dates: start: 2016
  2. FOLIC ACID. [Concomitant]
     Active Substance: FOLIC ACID
     Indication: PSORIATIC ARTHROPATHY
     Dosage: 0.4 MG, 2X/DAY
     Route: 048
     Dates: start: 20141229
  3. TOFACITINIB CITRATE [Suspect]
     Active Substance: TOFACITINIB CITRATE
     Dosage: UNK, BID
     Route: 048
     Dates: start: 20201008, end: 20201022
  4. DIAMMONIUM GLYCYRRHIZINATE [Concomitant]
     Active Substance: HERBALS\DIAMMONIUM GLYCYRRHIZINATE
     Indication: ASPARTATE AMINOTRANSFERASE INCREASED
  5. SILYMARINE [Concomitant]
     Indication: ALANINE AMINOTRANSFERASE INCREASED
     Dosage: 70 MG, 3X/DAY
     Route: 048
     Dates: start: 20200826
  6. TOFACITINIB CITRATE [Suspect]
     Active Substance: TOFACITINIB CITRATE
     Indication: PSORIATIC ARTHROPATHY
     Dosage: UNK, BID
     Route: 048
     Dates: start: 20200628, end: 20200925
  7. METHOTREXATE. [Concomitant]
     Active Substance: METHOTREXATE
     Indication: PSORIATIC ARTHROPATHY
     Dosage: 2.5 MG, WEEKLY
     Route: 048
     Dates: start: 20201008
  8. DIAMMONIUM GLYCYRRHIZINATE [Concomitant]
     Active Substance: HERBALS\DIAMMONIUM GLYCYRRHIZINATE
     Indication: ALANINE AMINOTRANSFERASE INCREASED
     Dosage: 150 MG, 3X/DAY
     Route: 048
     Dates: start: 20200805
  9. SILYMARINE [Concomitant]
     Indication: ASPARTATE AMINOTRANSFERASE INCREASED

REACTIONS (1)
  - Eye injury [Recovered/Resolved]

NARRATIVE: CASE EVENT DATE: 20210415
